FAERS Safety Report 6545377-6 (Version None)
Quarter: 2010Q1

REPORT INFORMATION
  Report Type: 
  Country: None (occurrence: None)
  Receive Date: 20100121
  Receipt Date: 20100112
  Transmission Date: 20100710
  Serious: No
  Sender: FDA-Public Use
  Company Number: US-ROXANE LABORATORIES, INC.-2010-RO-00029RO

PATIENT

DRUGS (1)
  1. DIAZEPAM [Suspect]
     Indication: BLADDER SPASM
     Route: 048

REACTIONS (3)
  - PRODUCT TASTE ABNORMAL [None]
  - RETCHING [None]
  - VOMITING [None]
